FAERS Safety Report 16916286 (Version 1)
Quarter: 2019Q4

REPORT INFORMATION
  Report Type: Spontaneous
  Country: GB (occurrence: GB)
  Receive Date: 20191014
  Receipt Date: 20191014
  Transmission Date: 20200122
  Serious: Yes (Other)
  Sender: FDA-Public Use
  Company Number: GB-MYLANLABS-2019M1095551

PATIENT
  Age: 30 Year
  Sex: Female

DRUGS (1)
  1. TRETINOIN. [Suspect]
     Active Substance: TRETINOIN
     Indication: PRODUCT USED FOR UNKNOWN INDICATION
     Dosage: DERMATICA TRETINOIN
     Route: 061
     Dates: start: 201809

REACTIONS (7)
  - Migraine [Recovered/Resolved]
  - Dizziness [Recovered/Resolved]
  - Application site swelling [Recovered/Resolved]
  - Rash [Recovered/Resolved]
  - Skull malformation [Not Recovered/Not Resolved]
  - Photophobia [Recovered/Resolved]
  - Jaw disorder [Not Recovered/Not Resolved]

NARRATIVE: CASE EVENT DATE: 2018
